APPROVED DRUG PRODUCT: ELIFEMME
Active Ingredient: ETHINYL ESTRADIOL; LEVONORGESTREL
Strength: 0.03MG,0.04MG,0.03MG;0.05MG,0.075MG,0.125MG
Dosage Form/Route: TABLET;ORAL-28
Application: A202507 | Product #001
Applicant: XIROMED PHARMA ESPANA SL
Approved: Dec 4, 2015 | RLD: No | RS: No | Type: DISCN